FAERS Safety Report 5407120-3 (Version None)
Quarter: 2007Q3

REPORT INFORMATION
  Report Type: 
  Country: None (occurrence: None)
  Receive Date: 20070807
  Receipt Date: 20070717
  Transmission Date: 20080115
  Serious: Yes (Hospitalization)
  Sender: FDA-Public Use
  Company Number: PHHO2007JP10537

PATIENT
  Age: 75 Year
  Sex: Male
  Weight: 64 kg

DRUGS (15)
  1. CLOZAPINE [Suspect]
     Indication: ACCIDENTAL EXPOSURE
     Dosage: 100 MG, ONCE/SINGLE
     Route: 048
     Dates: start: 20070617, end: 20070617
  2. MYSLEE [Suspect]
     Indication: ACCIDENTAL EXPOSURE
     Dosage: 20 MG, ONCE/SINGLE
     Route: 048
     Dates: start: 20070617, end: 20070617
  3. PURSENNID /SCH/ [Suspect]
     Dosage: 36 MD/DAY
     Route: 048
     Dates: start: 20070617, end: 20070617
  4. DECADRON /CAN/ [Concomitant]
     Dosage: 0.5 MG/DAY
     Route: 048
  5. THYRADIN S [Concomitant]
     Dosage: 100 MCG/DAY
     Route: 048
  6. ASPIRIN [Concomitant]
     Dosage: 100 MG/DAY
     Route: 048
  7. D ALFA [Concomitant]
     Dosage: 0.25 MCG/DAY
     Route: 048
  8. SELBEX [Concomitant]
     Dosage: 1.5 G/DAY
     Route: 048
  9. PARLODEL [Concomitant]
     Dosage: 12.5 MG/DAY
     Route: 048
  10. CALCIUM CARBONATE [Concomitant]
     Dosage: 1500 MG/DAY
     Route: 048
  11. OMEPRAZOLE [Concomitant]
     Dosage: 20 MG/DAY
     Route: 048
  12. PAXIL [Concomitant]
     Dosage: 10 MG/DAY
     Route: 048
  13. HALCION [Concomitant]
     Dosage: 0.125 MG/DAY
     Route: 048
  14. LECICARBON [Concomitant]
     Dosage: 1 DF/DAY
     Route: 054
  15. ASTAT [Concomitant]
     Dosage: 20 ML/DAY
     Route: 061

REACTIONS (9)
  - ABNORMAL BEHAVIOUR [None]
  - ACCIDENTAL EXPOSURE [None]
  - BLOOD PRESSURE DECREASED [None]
  - CONCOMITANT DISEASE AGGRAVATED [None]
  - DRUG INTERACTION [None]
  - GLOSSOPTOSIS [None]
  - OXYGEN SATURATION DECREASED [None]
  - SOMNOLENCE [None]
  - SPEECH DISORDER [None]
